FAERS Safety Report 13867609 (Version 2)
Quarter: 2017Q4

REPORT INFORMATION
  Report Type: Spontaneous
  Country: US (occurrence: US)
  Receive Date: 20170814
  Receipt Date: 20171114
  Transmission Date: 20180320
  Serious: No
  Sender: FDA-Public Use
  Company Number: US-AMGEN-USASP2017073332

PATIENT
  Age: 67 Year
  Sex: Female
  Weight: 85 kg

DRUGS (2)
  1. ZEMPLAR [Concomitant]
     Active Substance: PARICALCITOL
     Indication: VITAMIN D DEFICIENCY
     Dosage: 2 MUG, UNK
     Dates: start: 2014
  2. PARSABIV [Suspect]
     Active Substance: ETELCALCETIDE HYDROCHLORIDE
     Indication: VITAMIN D DEFICIENCY
     Dosage: 2.5 MG, QWK
     Route: 042
     Dates: start: 20170418, end: 20170509

REACTIONS (2)
  - Muscle twitching [Not Recovered/Not Resolved]
  - Underdose [Unknown]

NARRATIVE: CASE EVENT DATE: 20170418
